FAERS Safety Report 8227227-5 (Version None)
Quarter: 2012Q1

REPORT INFORMATION
  Report Type: 
  Country: None (occurrence: None)
  Receive Date: 20120322
  Receipt Date: 20120313
  Transmission Date: 20120608
  Serious: Yes (Other)
  Sender: FDA-Public Use
  Company Number: US-JNJFOC-20120308615

PATIENT
  Age: 52 Year
  Sex: Male

DRUGS (13)
  1. RALTEGRAVIR [Suspect]
     Indication: HIV INFECTION
     Route: 048
  2. EMTRICITABINE AND TENOFOVIR DISOPROXIL FUMARATE [Suspect]
     Indication: HIV INFECTION
     Route: 048
  3. ETRAVIRINE [Suspect]
     Indication: HIV INFECTION
     Dosage: ADMINISTERED THROUGH THE GASTROTOMY TUBE
     Route: 048
  4. ZOLPIDEM [Concomitant]
  5. ETRAVIRINE [Suspect]
     Dosage: IN THE MORNING
     Route: 048
  6. VORICONAZOLE [Concomitant]
  7. ENTERAL NUTRITION [Concomitant]
  8. RALTEGRAVIR [Suspect]
     Dosage: ADMINISTERED THROUGH THE GASTROTOMY TUBE
     Route: 048
  9. TRIMETHOPRIM + SULFAMETHOXAZOLE [Concomitant]
  10. OMEPRAZOLE [Concomitant]
  11. OXYCODONE/ACETAMINOPHEN [Concomitant]
  12. EMTRICITABINE AND TENOFOVIR DISOPROXIL FUMARATE [Suspect]
     Dosage: ADMINISTERED THROUGH THE GASTROTOMY TUBE
     Route: 048
  13. ENTECAVIR [Concomitant]
     Route: 065

REACTIONS (2)
  - OESOPHAGITIS ULCERATIVE [None]
  - OESOPHAGEAL PERFORATION [None]
